FAERS Safety Report 9337221 (Version 1)
Quarter: 2013Q2

REPORT INFORMATION
  Report Type: Spontaneous
  Country: US (occurrence: US)
  Receive Date: 20130607
  Receipt Date: 20130607
  Transmission Date: 20140414
  Serious: No
  Sender: FDA-Public Use
  Company Number: US-ASTRAZENECA-2013SE37876

PATIENT
  Age: 54 Year
  Sex: Male
  Weight: 113.4 kg

DRUGS (9)
  1. SEROQUEL [Suspect]
     Indication: SLEEP DISORDER
     Route: 048
     Dates: start: 2001
  2. SEROQUEL [Suspect]
     Indication: BIPOLAR DISORDER
     Route: 048
     Dates: start: 2001
  3. SEROQUEL [Suspect]
     Indication: SLEEP DISORDER
     Route: 048
     Dates: end: 2012
  4. SEROQUEL [Suspect]
     Indication: BIPOLAR DISORDER
     Route: 048
     Dates: end: 2012
  5. SEROQUEL [Suspect]
     Indication: SLEEP DISORDER
     Dosage: SPLIT THE PILL IN HALF FOR A SHORT TIME THEN IN QUARTERS
     Route: 048
     Dates: start: 2012, end: 2012
  6. SEROQUEL [Suspect]
     Indication: BIPOLAR DISORDER
     Dosage: SPLIT THE PILL IN HALF FOR A SHORT TIME THEN IN QUARTERS
     Route: 048
     Dates: start: 2012, end: 2012
  7. SEROQUEL [Suspect]
     Indication: SLEEP DISORDER
     Route: 048
     Dates: start: 2012
  8. SEROQUEL [Suspect]
     Indication: BIPOLAR DISORDER
     Route: 048
     Dates: start: 2012
  9. LITHIUM [Concomitant]
     Indication: BIPOLAR DISORDER
     Route: 048

REACTIONS (7)
  - Rash generalised [Unknown]
  - Insomnia [Unknown]
  - Rash [Unknown]
  - Discomfort [Unknown]
  - Intentional drug misuse [Unknown]
  - Intentional drug misuse [Unknown]
  - Drug dose omission [Unknown]
